FAERS Safety Report 7272679-0 (Version None)
Quarter: 2011Q1

REPORT INFORMATION
  Report Type: 
  Country: None (occurrence: None)
  Receive Date: 20110203
  Receipt Date: 20101216
  Transmission Date: 20110831
  Serious: Yes (Hospitalization)
  Sender: FDA-Public Use
  Company Number: US-BAYER-201037703NA

PATIENT
  Sex: Female
  Weight: 118.82 kg

DRUGS (14)
  1. IMURAN [Concomitant]
     Dosage: UNK
     Dates: start: 20010101
  2. MORPHINE [Concomitant]
  3. YASMIN [Suspect]
     Indication: ACNE
     Dosage: UNK
     Dates: start: 20000101, end: 20040101
  4. YASMIN [Suspect]
     Dosage: UNK
     Dates: start: 20020325, end: 20030101
  5. IRON [IRON] [Concomitant]
  6. YAZ [Suspect]
     Indication: ACNE
  7. CLORAZEPATE DIPOTASSIUM [Concomitant]
  8. MAALOX TC [Concomitant]
  9. DONNATAL [Concomitant]
  10. DARVOCET-N 100 [Concomitant]
  11. OCELLA [Suspect]
     Indication: ACNE
  12. AZATHIOPRINE [Concomitant]
  13. ASACOL [Concomitant]
     Dosage: 150 MG, QD
     Dates: start: 20010101
  14. PHENERGAN VC [Concomitant]

REACTIONS (4)
  - CHOLECYSTITIS CHRONIC [None]
  - PAIN [None]
  - CHOLELITHIASIS [None]
  - CHOLECYSTITIS ACUTE [None]
